FAERS Safety Report 7175854-9 (Version None)
Quarter: 2010Q4

REPORT INFORMATION
  Report Type: 
  Country: None (occurrence: None)
  Receive Date: 20101220
  Receipt Date: 20100415
  Transmission Date: 20110411
  Serious: Yes (Hospitalization)
  Sender: FDA-Public Use
  Company Number: US-AMGEN-QUU403232

PATIENT

DRUGS (7)
  1. ENBREL [Suspect]
     Indication: PSORIATIC ARTHROPATHY
     Dosage: 25 MG, 2 TIMES/WK
     Route: 058
     Dates: start: 20070101, end: 20100118
  2. METHOTREXATE [Concomitant]
     Dosage: 5 MG, QWK
     Dates: start: 19900101
  3. TRAMADOL HCL [Concomitant]
  4. RAMIPRIL [Concomitant]
  5. AMLODIPINE BESYLATE [Concomitant]
  6. FLUVASTATIN SODIUM [Concomitant]
  7. PREDNISONE [Concomitant]

REACTIONS (3)
  - POSTOPERATIVE WOUND INFECTION [None]
  - RHEUMATOID ARTHRITIS [None]
  - VULVAL CANCER [None]
